FAERS Safety Report 9227896 (Version 1)
Quarter: 2013Q2

REPORT INFORMATION
  Report Type: Spontaneous
  Country: PA (occurrence: PA)
  Receive Date: 20130412
  Receipt Date: 20130412
  Transmission Date: 20140414
  Serious: Yes (Other)
  Sender: FDA-Public Use
  Company Number: PA-PFIZER INC-2013109571

PATIENT
  Age: 61 Year
  Sex: Male

DRUGS (3)
  1. VIAGRA [Suspect]
     Indication: ERECTILE DYSFUNCTION
     Dosage: UNK
  2. VIAGRA [Suspect]
     Dosage: 50 MG, UNK
  3. VIAGRA [Suspect]
     Dosage: 100 MG, UNK

REACTIONS (12)
  - Retinitis pigmentosa [Unknown]
  - Vision blurred [Not Recovered/Not Resolved]
  - Hypertension [Unknown]
  - Diabetes mellitus [Unknown]
  - Cardiovascular disorder [Unknown]
  - Haemorrhagic disorder [Unknown]
  - Peptic ulcer [Unknown]
  - Arrhythmia [Unknown]
  - Mental disorder [Unknown]
  - Emotional disorder [Unknown]
  - Drug ineffective [Unknown]
  - Drug effect incomplete [Unknown]
